FAERS Safety Report 6905369-1 (Version None)
Quarter: 2010Q3

REPORT INFORMATION
  Report Type: 
  Country: None (occurrence: None)
  Receive Date: 20100802
  Receipt Date: 20100720
  Transmission Date: 20110219
  Serious: Yes (Other)
  Sender: FDA-Public Use
  Company Number: 7011983

PATIENT
  Age: 36 Year
  Sex: Male

DRUGS (5)
  1. REBIF [Suspect]
     Indication: PRODUCT USED FOR UNKNOWN INDICATION
     Dosage: 44 MCG, 3 IN 1 WK, SUBCUTANEOUS
     Route: 058
     Dates: start: 20080717
  2. AMITRIPTYLINE HYDROCHLORIDE [Concomitant]
  3. XANAX [Concomitant]
  4. CLONAZEPAM [Concomitant]
  5. VICODIN [Concomitant]

REACTIONS (8)
  - CRYING [None]
  - DEPRESSION [None]
  - INFLUENZA LIKE ILLNESS [None]
  - INJECTION SITE SWELLING [None]
  - MOOD SWINGS [None]
  - PAIN IN EXTREMITY [None]
  - POST-TRAUMATIC STRESS DISORDER [None]
  - SUICIDAL IDEATION [None]
